FAERS Safety Report 21356031 (Version 1)
Quarter: 2022Q3

REPORT INFORMATION
  Report Type: Spontaneous
  Country: US (occurrence: US)
  Receive Date: 20220920
  Receipt Date: 20220920
  Transmission Date: 20221027
  Serious: Yes (Other)
  Sender: FDA-Public Use
  Company Number: US-BAXTER-2022BAX019887

PATIENT
  Age: 75 Year
  Sex: Male

DRUGS (2)
  1. NEXTERONE [Suspect]
     Active Substance: AMIODARONE HYDROCHLORIDE
     Indication: Arrhythmia
     Dosage: LOADING DOSE THEN DECREASED TO MAINTENANCE DOSE
     Route: 065
  2. OXYGEN [Concomitant]
     Active Substance: OXYGEN
     Route: 065

REACTIONS (1)
  - Hepatitis acute [Recovered/Resolved]
